FAERS Safety Report 25102452 (Version 1)
Quarter: 2025Q1

REPORT INFORMATION
  Report Type: Report from Study
  Country: US (occurrence: US)
  Receive Date: 20250321
  Receipt Date: 20250321
  Transmission Date: 20250409
  Serious: Yes (Other)
  Sender: TAKEDA
  Company Number: US-TAKEDA-2025TUS018180

PATIENT
  Sex: Female

DRUGS (8)
  1. IXAZOMIB [Suspect]
     Active Substance: IXAZOMIB
     Indication: Plasma cell myeloma
  2. IXAZOMIB [Suspect]
     Active Substance: IXAZOMIB
     Dosage: 4 MILLIGRAM, 1/WEEK
  3. ACYCLOVIR [Concomitant]
     Active Substance: ACYCLOVIR
  4. ASPIRIN [Concomitant]
     Active Substance: ASPIRIN
  5. DEXAMETHASONE [Concomitant]
     Active Substance: DEXAMETHASONE
  6. LEVOTHYROXINE [Concomitant]
     Active Substance: LEVOTHYROXINE
  7. MESALAMINE [Concomitant]
     Active Substance: MESALAMINE
  8. REVLIMID [Concomitant]
     Active Substance: LENALIDOMIDE

REACTIONS (3)
  - Pneumonia [Unknown]
  - Nasopharyngitis [Not Recovered/Not Resolved]
  - Nausea [Recovered/Resolved]
